FAERS Safety Report 5664465-X (Version None)
Quarter: 2008Q1

REPORT INFORMATION
  Report Type: 
  Country: None (occurrence: None)
  Receive Date: 20080314
  Receipt Date: 20080306
  Transmission Date: 20080703
  Serious: Yes (Other)
  Sender: FDA-Public Use
  Company Number: A0703016A

PATIENT
  Age: 59 Year
  Sex: Male
  Weight: 61.4 kg

DRUGS (2)
  1. LAMICTAL [Suspect]
     Indication: DRUG USE FOR UNKNOWN INDICATION
     Dosage: 25MG IN THE MORNING
     Route: 048
     Dates: start: 20060311, end: 20070101
  2. FLUOXETINE [Concomitant]
     Route: 048
     Dates: start: 20070701

REACTIONS (6)
  - BLOOD BILIRUBIN INCREASED [None]
  - CHROMATURIA [None]
  - HEPATIC ENZYME INCREASED [None]
  - HEPATITIS [None]
  - JAUNDICE [None]
  - NAUSEA [None]
